FAERS Safety Report 24741052 (Version 2)
Quarter: 2025Q1

REPORT INFORMATION
  Report Type: Spontaneous
  Country: US (occurrence: US)
  Receive Date: 20241217
  Receipt Date: 20250315
  Transmission Date: 20250409
  Serious: Yes (Other)
  Sender: AUROBINDO
  Company Number: US-AUROBINDO-AUR-APL-2024-048812

PATIENT
  Age: 17 Year
  Sex: Male
  Weight: 25.1 kg

DRUGS (8)
  1. DEXMEDETOMIDINE HYDROCHLORIDE [Suspect]
     Active Substance: DEXMEDETOMIDINE HYDROCHLORIDE
     Indication: Paroxysmal autonomic instability with dystonia
     Route: 042
  2. DEXMEDETOMIDINE HYDROCHLORIDE [Suspect]
     Active Substance: DEXMEDETOMIDINE HYDROCHLORIDE
     Indication: Pain
  3. CARBIDOPA\LEVODOPA [Suspect]
     Active Substance: CARBIDOPA\LEVODOPA
     Indication: Dystonia
     Route: 065
  4. CLONIDINE [Concomitant]
     Active Substance: CLONIDINE
     Indication: Dystonia
     Dosage: 0.6 MILLIGRAM, ONCE A DAY (DOSE WAS INCREASED)
     Route: 062
  5. CLONIDINE [Concomitant]
     Active Substance: CLONIDINE
     Dosage: 100 MICROGRAM, FOUR TIMES/DAY BY JEJUNOSTOMY TUBE
     Route: 062
  6. RIFAXIMIN [Concomitant]
     Active Substance: RIFAXIMIN
     Indication: Intestinal haemorrhage
     Dosage: 200 MILLIGRAM, 3 TIMES A DAY BY JEJUNOSTOMY TUBE
     Route: 048
  7. OXYCODONE [Concomitant]
     Active Substance: OXYCODONE
     Indication: Product used for unknown indication
     Route: 065
  8. RISPERIDONE [Concomitant]
     Active Substance: RISPERIDONE
     Indication: Product used for unknown indication
     Route: 065

REACTIONS (2)
  - Drug ineffective [Unknown]
  - Off label use [Unknown]
